FAERS Safety Report 24391859 (Version 2)
Quarter: 2025Q1

REPORT INFORMATION
  Report Type: Spontaneous
  Country: US (occurrence: US)
  Receive Date: 20241003
  Receipt Date: 20250108
  Transmission Date: 20250409
  Serious: Yes (Hospitalization, Other)
  Sender: SANOFI AVENTIS
  Company Number: US-SA-2024SA283339

PATIENT
  Age: 23 Year
  Sex: Male

DRUGS (2)
  1. DUPIXENT [Suspect]
     Active Substance: DUPILUMAB
     Indication: Asthma
     Dosage: 300 MG, QOW
     Route: 058
     Dates: start: 202408
  2. STERILE WATER [Concomitant]
     Active Substance: WATER

REACTIONS (5)
  - Atypical mycobacterial infection [Unknown]
  - Cystic fibrosis [Recovered/Resolved]
  - Haemoptysis [Recovered/Resolved]
  - Cough [Recovered/Resolved]
  - Respiratory tract irritation [Recovered/Resolved]

NARRATIVE: CASE EVENT DATE: 20240101
